FAERS Safety Report 15205937 (Version 3)
Quarter: 2018Q3

REPORT INFORMATION
  Report Type: Spontaneous
  Country: US (occurrence: US)
  Receive Date: 20180727
  Receipt Date: 20180904
  Transmission Date: 20181010
  Serious: Yes (Other)
  Sender: FDA-Public Use
  Company Number: US-ROCHE-2158796

PATIENT
  Age: 50 Year
  Sex: Female
  Weight: 90.8 kg

DRUGS (5)
  1. BACLOFEN. [Concomitant]
     Active Substance: BACLOFEN
     Indication: MULTIPLE SCLEROSIS
  2. OCREVUS [Suspect]
     Active Substance: OCRELIZUMAB
     Indication: RELAPSING-REMITTING MULTIPLE SCLEROSIS
     Dosage: ON 13/FEB/2018, SHE RECEIVED THE SECOND DOSE OF OCRELIZUMAB.?ON 01/AUG/2018, SHE RECEIVED THE FIRST
     Route: 065
     Dates: start: 20180130
  3. GABAPENTIN. [Concomitant]
     Active Substance: GABAPENTIN
     Indication: MULTIPLE SCLEROSIS
  4. BENADRYL [Suspect]
     Active Substance: DIPHENHYDRAMINE HYDROCHLORIDE
     Indication: SKIN BURNING SENSATION
     Dosage: INDICATION: SKIN FEELS LIKE SUNBURN A BURNING FEELING, HURTS, FEELS LIKE BEING ZAPPED, FEELS LIKE A
     Route: 065
  5. PRISTIQ EXTENDED?RELEASE [Concomitant]
     Active Substance: DESVENLAFAXINE SUCCINATE
     Indication: DEPRESSION
     Dosage: TAKING FOR THE LAST 6 YEARS
     Route: 065

REACTIONS (14)
  - Sensory disturbance [Not Recovered/Not Resolved]
  - Skin warm [Unknown]
  - Pain [Not Recovered/Not Resolved]
  - Condition aggravated [Unknown]
  - Feeling abnormal [Not Recovered/Not Resolved]
  - Flushing [Not Recovered/Not Resolved]
  - Headache [Unknown]
  - Skin burning sensation [Not Recovered/Not Resolved]
  - Somnolence [Unknown]
  - Loss of personal independence in daily activities [Not Recovered/Not Resolved]
  - Headache [Not Recovered/Not Resolved]
  - Cough [Not Recovered/Not Resolved]
  - Chest discomfort [Not Recovered/Not Resolved]
  - Fatigue [Not Recovered/Not Resolved]

NARRATIVE: CASE EVENT DATE: 20180130
